FAERS Safety Report 5335351-X (Version None)
Quarter: 2007Q2

REPORT INFORMATION
  Report Type: 
  Country: None (occurrence: None)
  Receive Date: 20070525
  Receipt Date: 20070515
  Transmission Date: 20071010
  Serious: Yes (Hospitalization, Other)
  Sender: FDA-Public Use
  Company Number: US-PFIZER INC-2007039575

PATIENT
  Sex: Male

DRUGS (3)
  1. SULFASALAZINE [Suspect]
  2. ETANERCEPT [Suspect]
     Indication: PSORIATIC ARTHROPATHY
     Route: 058
     Dates: start: 20070101, end: 20070315
  3. NAPROXEN [Concomitant]

REACTIONS (4)
  - CELLULITIS [None]
  - CYST REMOVAL [None]
  - RASH [None]
  - WALKING DISABILITY [None]
